FAERS Safety Report 11391778 (Version 1)
Quarter: 2015Q3

REPORT INFORMATION
  Report Type: Spontaneous
  Country: US (occurrence: None)
  Receive Date: 20150814
  Receipt Date: 20150814
  Transmission Date: 20151125
  Serious: Yes (Disabling, Other)
  Sender: FDA-Public Use
  Company Number: None

PATIENT
  Age: 34 Year
  Sex: Male
  Weight: 81.65 kg

DRUGS (5)
  1. LITHIUM. [Concomitant]
     Active Substance: LITHIUM
  2. BUPROPION XL WELLBUTRIN XL 300 MG [Suspect]
     Active Substance: BUPROPION
     Indication: DEPRESSION
     Dosage: IN AM
     Route: 048
     Dates: start: 201502, end: 201508
  3. GENERIC FLEXERIL [Suspect]
     Active Substance: CYCLOBENZAPRINE HYDROCHLORIDE
     Indication: MUSCLE SPASMS
     Dosage: 1 PILL AS NEEDED
     Route: 048
     Dates: start: 201506, end: 201507
  4. BUPROPION XL WELLBUTRIN XL 300 MG [Suspect]
     Active Substance: BUPROPION
     Indication: ATTENTION DEFICIT/HYPERACTIVITY DISORDER
     Dosage: IN AM
     Route: 048
     Dates: start: 201502, end: 201508
  5. GENERIC FLEXERIL [Suspect]
     Active Substance: CYCLOBENZAPRINE HYDROCHLORIDE
     Indication: BACK INJURY
     Dosage: 1 PILL AS NEEDED
     Route: 048
     Dates: start: 201506, end: 201507

REACTIONS (4)
  - Drug ineffective [None]
  - Product substitution issue [None]
  - Depression [None]
  - Product quality issue [None]

NARRATIVE: CASE EVENT DATE: 20150812
